FAERS Safety Report 7540301-1 (Version None)
Quarter: 2011Q2

REPORT INFORMATION
  Report Type: 
  Country: None (occurrence: None)
  Receive Date: 20110610
  Receipt Date: 20110606
  Transmission Date: 20111010
  Serious: Yes (Hospitalization)
  Sender: FDA-Public Use
  Company Number: PHHY2011DE39707

PATIENT
  Sex: Male
  Weight: 68 kg

DRUGS (5)
  1. ILARIS [Suspect]
     Indication: CRYOPYRIN ASSOCIATED PERIODIC SYNDROME
     Dosage: 150 MG/DAY
     Route: 058
     Dates: start: 20091110, end: 20110302
  2. BISOPROLOL FUMARATE [Concomitant]
     Dosage: 10 MG/DAY
     Route: 048
     Dates: start: 20100601
  3. LOSARTAN POTASSIUM [Concomitant]
     Dosage: 100 MG/DAY
     Route: 048
     Dates: start: 20100601
  4. HYDROCHLOROTHIAZIDE [Concomitant]
     Dosage: 12.5 MG/DAY
     Route: 048
     Dates: start: 20110301
  5. AMLODIPINE [Concomitant]
     Dosage: 10 MG/DAY
     Route: 048
     Dates: start: 20100601

REACTIONS (1)
  - CELLULITIS [None]
